FAERS Safety Report 17007747 (Version 2)
Quarter: 2019Q4

REPORT INFORMATION
  Report Type: Report from Study
  Country: US (occurrence: US)
  Receive Date: 20191108
  Receipt Date: 20191224
  Transmission Date: 20200122
  Serious: Yes (Hospitalization)
  Sender: FDA-Public Use
  Company Number: US-ROCHE-2466038

PATIENT
  Age: 68 Year
  Sex: Female
  Weight: 50.79 kg

DRUGS (24)
  1. ZINC. [Concomitant]
     Active Substance: ZINC
     Route: 065
     Dates: start: 20190116
  2. CISPLATIN. [Suspect]
     Active Substance: CISPLATIN
     Dosage: CYCLIC
     Route: 042
  3. LIDOCAINE. [Concomitant]
     Active Substance: LIDOCAINE
     Route: 065
     Dates: start: 20190204
  4. GINGER [ZINGIBER OFFICINALE] [Concomitant]
     Active Substance: GINGER
     Route: 065
     Dates: start: 20190131
  5. PEGPH20 [Suspect]
     Active Substance: PEGVORHYALURONIDASE ALFA
     Dosage: STRENGTH: 0.3 MG/ML, DOSE: 3 MICROGRAM/KILOGRAM, CYCLIC
     Route: 042
     Dates: start: 20190416
  6. ONDANSETRON HCL [Concomitant]
     Active Substance: ONDANSETRON HYDROCHLORIDE
     Route: 065
     Dates: start: 20190131
  7. IBUPROFEN. [Concomitant]
     Active Substance: IBUPROFEN
     Route: 065
     Dates: start: 20190116
  8. SELENIUM [Concomitant]
     Active Substance: SELENIUM
     Route: 065
     Dates: start: 20190125
  9. CISPLATIN. [Suspect]
     Active Substance: CISPLATIN
     Indication: GALLBLADDER ADENOCARCINOMA
     Dosage: CYCLIC
     Route: 042
     Dates: start: 20190205, end: 20190408
  10. CHOLECALCIFEROL [Concomitant]
     Active Substance: CHOLECALCIFEROL
     Route: 065
     Dates: start: 20190125
  11. ENOXAPARIN [Concomitant]
     Active Substance: ENOXAPARIN
  12. OMEPRAZOLE. [Concomitant]
     Active Substance: OMEPRAZOLE
  13. GEMCITABINE. [Suspect]
     Active Substance: GEMCITABINE
     Dosage: CYCLIC
     Route: 042
  14. RITALIN [Concomitant]
     Active Substance: METHYLPHENIDATE HYDROCHLORIDE
  15. ATEZOLIZUMAB. [Suspect]
     Active Substance: ATEZOLIZUMAB
     Indication: GALLBLADDER ADENOCARCINOMA
     Dosage: CYCLIC
     Route: 042
     Dates: start: 20190204, end: 20190408
  16. PEGPH20 [Suspect]
     Active Substance: PEGVORHYALURONIDASE ALFA
     Indication: GALLBLADDER ADENOCARCINOMA
     Dosage: STRENGTH: 0.3 MG/ML, DOSE: 3 MICROGRAM/KILOGRAM, CYCLIC
     Route: 042
     Dates: start: 20190204, end: 20190408
  17. PROCHLORPERAZINE MALEATE. [Concomitant]
     Active Substance: PROCHLORPERAZINE MALEATE
     Route: 065
     Dates: start: 20190131
  18. MAGNESIUM OXIDE. [Concomitant]
     Active Substance: MAGNESIUM OXIDE
     Route: 065
     Dates: start: 20190116
  19. PARACETAMOL [Concomitant]
     Active Substance: ACETAMINOPHEN
     Route: 065
     Dates: start: 20190304
  20. BIOTIN [Concomitant]
     Active Substance: BIOTIN
     Route: 065
     Dates: start: 20190116
  21. GEMCITABINE. [Suspect]
     Active Substance: GEMCITABINE
     Indication: GALLBLADDER ADENOCARCINOMA
     Dosage: CYCLIC
     Route: 042
     Dates: start: 20190205, end: 20190408
  22. PRILOCAINE [Concomitant]
     Active Substance: PRILOCAINE
     Route: 065
     Dates: start: 20190204
  23. ATEZOLIZUMAB. [Suspect]
     Active Substance: ATEZOLIZUMAB
     Dosage: CYCLIC
     Route: 042
  24. OMEGA-3 [DOCOSAHEXAENOIC ACID;EICOSAPENTAENOIC ACID] [Concomitant]
     Active Substance: DOCONEXENT\ICOSAPENT
     Route: 065
     Dates: start: 20190116

REACTIONS (4)
  - Bile duct obstruction [Recovered/Resolved]
  - Blood alkaline phosphatase increased [Recovered/Resolved]
  - Aspartate aminotransferase increased [Recovered/Resolved]
  - Alanine aminotransferase increased [Recovered/Resolved]

NARRATIVE: CASE EVENT DATE: 20190408
